FAERS Safety Report 7739348-1 (Version None)
Quarter: 2011Q3

REPORT INFORMATION
  Report Type: 
  Country: None (occurrence: None)
  Receive Date: 20110909
  Receipt Date: 20110825
  Transmission Date: 20111222
  Serious: Yes (Other)
  Sender: FDA-Public Use
  Company Number: US-CELGENEUS-163-21880-11022161

PATIENT
  Sex: Female

DRUGS (6)
  1. SEPTRA DS [Concomitant]
     Route: 065
     Dates: start: 20090217
  2. ACYCLOVIR [Concomitant]
     Route: 065
     Dates: start: 20090217
  3. REVLIMID [Suspect]
     Dosage: 15 MILLIGRAM
     Route: 048
     Dates: start: 20091001, end: 20110801
  4. DEXAMETHASONE [Concomitant]
     Route: 065
     Dates: start: 20090217, end: 20090701
  5. REVLIMID [Suspect]
     Indication: MULTIPLE MYELOMA
     Dosage: 25 MILLIGRAM
     Route: 048
     Dates: start: 20090217, end: 20090701
  6. PRILOSEC [Concomitant]
     Dosage: 10 MILLIGRAM
     Route: 065
     Dates: start: 20090217

REACTIONS (1)
  - MALIGNANT MELANOMA [None]
